FAERS Safety Report 5189060-0 (Version None)
Quarter: 2006Q4

REPORT INFORMATION
  Report Type: 
  Country: None (occurrence: None)
  Receive Date: 20061215
  Receipt Date: 20060928
  Transmission Date: 20070319
  Serious: No
  Sender: FDA-Public Use
  Company Number: COM # 06-152

PATIENT
  Age: 76 Year
  Sex: Female

DRUGS (1)
  1. TRAMADOL HYDROCHLORIDE [Suspect]
     Indication: PAIN MANAGEMENT
     Dosage: 1 TABLET DAILY; LESS THAN A MONTH

REACTIONS (5)
  - ANOREXIA [None]
  - GASTRIC DISORDER [None]
  - GASTROINTESTINAL HYPOMOTILITY [None]
  - IMPAIRED WORK ABILITY [None]
  - WEIGHT DECREASED [None]
